FAERS Safety Report 10088262 (Version 2)
Quarter: 2014Q2

REPORT INFORMATION
  Report Type: Spontaneous
  Country: US (occurrence: IT)
  Receive Date: 20140421
  Receipt Date: 20140612
  Transmission Date: 20141212
  Serious: Yes (Hospitalization)
  Sender: FDA-Public Use
  Company Number: 2014SP002126

PATIENT
  Age: 81 Year
  Sex: Female

DRUGS (3)
  1. CARBOPLATIN [Suspect]
     Indication: OVARIAN NEOPLASM
     Route: 042
     Dates: start: 20140327, end: 20140327
  2. ONDANSETRON HYDROCHLORIDE [Concomitant]
     Route: 042
     Dates: start: 20140327, end: 20140327
  3. DEXAMETHASONE PHOSPHATE [Concomitant]
     Route: 042
     Dates: start: 20140327, end: 20140327

REACTIONS (4)
  - Hyperhidrosis [Recovering/Resolving]
  - Hypovolaemia [Recovering/Resolving]
  - Vomiting [Recovering/Resolving]
  - Pruritus [Recovering/Resolving]
